FAERS Safety Report 7124123-1 (Version None)
Quarter: 2010Q4

REPORT INFORMATION
  Report Type: 
  Country: None (occurrence: None)
  Receive Date: 20101126
  Receipt Date: 20101112
  Transmission Date: 20110411
  Serious: Yes (Life-Threatening, Hospitalization)
  Sender: FDA-Public Use
  Company Number: DE-RANBAXY-2010RR-36962

PATIENT
  Age: 48 Year
  Sex: Female

DRUGS (3)
  1. FLECAINIDE [Suspect]
     Indication: SUICIDE ATTEMPT
     Route: 048
  2. CITALOPRAM HYDROBROMIDE [Concomitant]
     Dosage: 40 MG, UNK
  3. LAMOTRIGINE [Concomitant]
     Dosage: 25 MG, UNK

REACTIONS (2)
  - CARDIOGENIC SHOCK [None]
  - OVERDOSE [None]
